FAERS Safety Report 5631737-4 (Version None)
Quarter: 2008Q1

REPORT INFORMATION
  Report Type: 
  Country: None (occurrence: None)
  Receive Date: 20080220
  Receipt Date: 20080216
  Transmission Date: 20080703
  Serious: Yes (Other)
  Sender: FDA-Public Use
  Company Number: FR-BRISTOL-MYERS SQUIBB COMPANY-14079511

PATIENT
  Age: 90 Year
  Sex: Male

DRUGS (4)
  1. ELISOR TABS [Suspect]
     Dates: start: 20040101
  2. ATARAX [Concomitant]
  3. VASTAREL [Concomitant]
  4. ASPEGIC 1000 [Concomitant]

REACTIONS (1)
  - RHABDOMYOSARCOMA [None]
